FAERS Safety Report 23176427 (Version 1)
Quarter: 2023Q4

REPORT INFORMATION
  Report Type: Spontaneous
  Country: AU (occurrence: AU)
  Receive Date: 20231113
  Receipt Date: 20231113
  Transmission Date: 20240109
  Serious: Yes (Other)
  Sender: FDA-Public Use
  Company Number: AU-PFIZER INC-PV202300181360

PATIENT
  Age: 8 Year
  Sex: Female

DRUGS (3)
  1. ZOLEDRONIC ACID [Suspect]
     Active Substance: ZOLEDRONIC ACID
     Dosage: 0.05 MG/KG, MONTHLY, (6 MONTHS)
     Route: 042
  2. CALCIUM [Concomitant]
     Active Substance: CALCIUM
     Indication: Osteogenesis imperfecta
     Dosage: 1 G, 2X/DAY
  3. CALCITRIOL [Concomitant]
     Active Substance: CALCITRIOL
     Indication: Osteogenesis imperfecta
     Dosage: 250 NG, 2X/DAY

REACTIONS (1)
  - Radius fracture [Unknown]
